FAERS Safety Report 4831891-8 (Version None)
Quarter: 2005Q4

REPORT INFORMATION
  Report Type: 
  Country: None (occurrence: None)
  Receive Date: 20051116
  Receipt Date: 20051107
  Transmission Date: 20060501
  Serious: Yes (Other)
  Sender: FDA-Public Use
  Company Number: 2005RR-01118

PATIENT
  Age: 32 Year
  Sex: Female

DRUGS (11)
  1. FLUOXETINE [Suspect]
     Dosage: 40 MG, QD, ORAL
     Route: 048
  2. SULPIRIDE (SULPIRIDE) [Suspect]
     Dosage: 400 MG, TID
  3. PAROXETINE HCL [Suspect]
  4. CLOZAPIN (CLOZAPINE) [Suspect]
     Dosage: 175 MG, QD
  5. OLANZAPINE [Suspect]
     Indication: SCHIZOPHRENIA
     Dosage: 15 MG, QD,ORAL
     Route: 048
  6. FLUPENTHIXOL [Concomitant]
  7. VENLAFAXINE HCL [Concomitant]
  8. RISPERIDONE [Concomitant]
  9. ZOPICLONE [Concomitant]
  10. CITALOPRAM TABLET 20 MG (CITALOPRAM) [Concomitant]
  11. CLONAZEPAM [Concomitant]

REACTIONS (18)
  - DEPRESSION [None]
  - DIZZINESS [None]
  - DRUG INTERACTION [None]
  - FATIGUE [None]
  - GRAND MAL CONVULSION [None]
  - HALLUCINATION, AUDITORY [None]
  - HEADACHE [None]
  - LOSS OF CONSCIOUSNESS [None]
  - MALAISE [None]
  - MENTAL IMPAIRMENT [None]
  - ORTHOSTATIC HYPOTENSION [None]
  - PERSECUTORY DELUSION [None]
  - SALIVARY HYPERSECRETION [None]
  - SCHIZOPHRENIA [None]
  - SCHIZOPHRENIA, PARANOID TYPE [None]
  - SYNCOPE VASOVAGAL [None]
  - TONGUE BITING [None]
  - URINARY INCONTINENCE [None]
